FAERS Safety Report 23872383 (Version 6)
Quarter: 2024Q4

REPORT INFORMATION
  Report Type: Report from Study
  Country: AR (occurrence: AR)
  Receive Date: 20240520
  Receipt Date: 20241008
  Transmission Date: 20250115
  Serious: No
  Sender: JOHNSON AND JOHNSON
  Company Number: AR-JNJFOC-20240490422

PATIENT
  Age: 67 Year
  Sex: Female
  Weight: 77 kg

DRUGS (3)
  1. SIMPONI [Suspect]
     Active Substance: GOLIMUMAB
     Indication: Rheumatoid arthritis
     Dosage: STRENGTH-50.00 MG / 0.50 ML
     Route: 058
  2. SIMPONI [Suspect]
     Active Substance: GOLIMUMAB
     Route: 058
  3. SIMPONI [Suspect]
     Active Substance: GOLIMUMAB
     Route: 058

REACTIONS (2)
  - Device issue [Unknown]
  - Product dose omission issue [Unknown]

NARRATIVE: CASE EVENT DATE: 20240424
